FAERS Safety Report 9234313 (Version 3)
Quarter: 2013Q3

REPORT INFORMATION
  Report Type: Report from Study
  Country: CN (occurrence: CN)
  Receive Date: 20130416
  Receipt Date: 20130806
  Transmission Date: 20140515
  Serious: Yes (Death)
  Sender: FDA-Public Use
  Company Number: CN-ROCHE-1181985

PATIENT
  Age: 41 Year
  Sex: Male
  Weight: 90 kg

DRUGS (2)
  1. AVASTIN [Suspect]
     Indication: COLORECTAL CANCER METASTATIC
     Route: 041
     Dates: start: 20120710
  2. AVASTIN [Suspect]
     Indication: METASTASES TO PERITONEUM

REACTIONS (4)
  - Death [Fatal]
  - Nausea [Unknown]
  - White blood cell count decreased [Unknown]
  - Nasopharyngitis [Unknown]
